FAERS Safety Report 9654823 (Version 2)
Quarter: 2013Q4

REPORT INFORMATION
  Report Type: Spontaneous
  Country: DE (occurrence: None)
  Receive Date: 20131015
  Receipt Date: 20131108
  Transmission Date: 20140711
  Serious: Yes (Death)
  Sender: FDA-Public Use
  Company Number: 2013038273

PATIENT
  Age: 73 Year
  Sex: Male

DRUGS (7)
  1. PRIVIGEN [Suspect]
     Indication: SECONDARY IMMUNODEFICIENCY
     Dates: start: 20111024
  2. INSULIN(INSULIN) [Concomitant]
  3. ASS(ACETYLSALICYLIC ACID) [Concomitant]
  4. ALLOPURINOL(ALLOPURINOL) [Concomitant]
  5. FUROSEMIDE(FUROSEMIDE) [Concomitant]
  6. METOPROLOL(METOPROLOL) [Concomitant]
  7. VALORON N /00628301/(VALORON N /00628301/) [Concomitant]

REACTIONS (3)
  - Cardiac failure [None]
  - Bronchitis [None]
  - Cystitis escherichia [None]
